FAERS Safety Report 7050153-4 (Version None)
Quarter: 2010Q4

REPORT INFORMATION
  Report Type: 
  Country: None (occurrence: None)
  Receive Date: 20101018
  Receipt Date: 20101006
  Transmission Date: 20110411
  Serious: Yes (Other)
  Sender: FDA-Public Use
  Company Number: JP-PFIZER INC-2010122530

PATIENT
  Age: 76 Year
  Sex: Female

DRUGS (8)
  1. LYRICA [Suspect]
     Indication: POST HERPETIC NEURALGIA
     Dosage: 25 MG/DAY
     Route: 048
     Dates: start: 20100901, end: 20100901
  2. LYRICA [Suspect]
     Dosage: 50 MG/DAY
     Route: 048
     Dates: start: 20100901, end: 20100901
  3. LYRICA [Suspect]
     Dosage: 75 MG/DAY
     Route: 048
     Dates: start: 20100901, end: 20100930
  4. TAKEPRON [Concomitant]
  5. RISUMIC [Concomitant]
     Route: 048
  6. NESPO ^AMGEN^ [Concomitant]
     Indication: DIALYSIS
  7. OXAROL [Concomitant]
     Indication: DIALYSIS
  8. DOPAMINE HCL [Concomitant]
     Indication: BLOOD PRESSURE INCREASED

REACTIONS (4)
  - BLOOD GLUCOSE INCREASED [None]
  - BLOOD PRESSURE DECREASED [None]
  - LOSS OF CONSCIOUSNESS [None]
  - WEIGHT INCREASED [None]
